FAERS Safety Report 7648821-6 (Version None)
Quarter: 2011Q3

REPORT INFORMATION
  Report Type: 
  Country: None (occurrence: None)
  Receive Date: 20110801
  Receipt Date: 20110728
  Transmission Date: 20111222
  Serious: Yes (Other)
  Sender: FDA-Public Use
  Company Number: US-PFIZER INC-2011172609

PATIENT
  Sex: Male
  Weight: 90.703 kg

DRUGS (1)
  1. LYRICA [Suspect]
     Indication: EPILEPSY
     Dosage: 1200 MG, 2X/DAY
     Route: 048
     Dates: start: 20050101, end: 20110101

REACTIONS (1)
  - BRAIN OPERATION [None]
